FAERS Safety Report 4586171-5 (Version None)
Quarter: 2005Q1

REPORT INFORMATION
  Report Type: 
  Country: None (occurrence: None)
  Receive Date: 20050125
  Receipt Date: 20041019
  Transmission Date: 20050727
  Serious: No
  Sender: FDA-Public Use
  Company Number: USA041081556

PATIENT
  Age: 71 Year
  Sex: Female
  Weight: 68 kg

DRUGS (9)
  1. FORTEO [Suspect]
     Indication: OSTEOPOROSIS
     Dosage: 20 UG/L DAY
     Dates: start: 20041014
  2. EVISTA [Suspect]
     Indication: BREAST CANCER
     Dates: start: 19990101, end: 20040901
  3. EVISTA [Suspect]
     Indication: PROPHYLAXIS
     Dates: start: 19990101, end: 20040901
  4. VITAMINS [Concomitant]
  5. VITAMN B6 [Concomitant]
  6. ACTONEL [Concomitant]
  7. CELEBREX [Concomitant]
  8. METHOCARBAMOL [Concomitant]
  9. CITRACAL (CALCIUM CITRATE) [Concomitant]

REACTIONS (4)
  - BONE DENSITY DECREASED [None]
  - INJECTION SITE ERYTHEMA [None]
  - INJECTION SITE WARMTH [None]
  - MUSCLE STRAIN [None]
